FAERS Safety Report 6825342-1 (Version None)
Quarter: 2010Q3

REPORT INFORMATION
  Report Type: 
  Country: None (occurrence: None)
  Receive Date: 20100708
  Receipt Date: 20070124
  Transmission Date: 20110219
  Serious: Yes (Other)
  Sender: FDA-Public Use
  Company Number: US-PFIZER INC-2006149340

PATIENT
  Sex: Male
  Weight: 79.4 kg

DRUGS (1)
  1. CHANTIX [Suspect]
     Indication: SMOKING CESSATION THERAPY
     Route: 048
     Dates: start: 20061112, end: 20070123

REACTIONS (12)
  - ABNORMAL DREAMS [None]
  - ANXIETY [None]
  - DIARRHOEA [None]
  - DISSOCIATION [None]
  - DISTURBANCE IN ATTENTION [None]
  - FLATULENCE [None]
  - INFLUENZA LIKE ILLNESS [None]
  - LIBIDO DECREASED [None]
  - LIP HAEMORRHAGE [None]
  - MUSCLE SPASMS [None]
  - MYALGIA [None]
  - NAUSEA [None]
